FAERS Safety Report 4863846-1 (Version None)
Quarter: 2005Q4

REPORT INFORMATION
  Report Type: 
  Country: None (occurrence: None)
  Receive Date: 20051222
  Receipt Date: 20051013
  Transmission Date: 20060501
  Serious: No
  Sender: FDA-Public Use
  Company Number: US-GLAXOSMITHKLINE-A0578136A

PATIENT
  Age: 75 Year
  Sex: Female

DRUGS (5)
  1. FLONASE [Suspect]
     Dosage: 1SPR PER DAY
     Route: 045
     Dates: end: 20050101
  2. ACTONEL [Concomitant]
  3. TOPROL-XL [Concomitant]
  4. DIPYRIDAMOLE [Concomitant]
  5. ZYRTEC [Concomitant]

REACTIONS (2)
  - CAUTERY TO NOSE [None]
  - EPISTAXIS [None]
